FAERS Safety Report 19364576 (Version 1)
Quarter: 2021Q2

REPORT INFORMATION
  Report Type: Spontaneous
  Country: US (occurrence: US)
  Receive Date: 20210602
  Receipt Date: 20210602
  Transmission Date: 20210717
  Serious: Yes (Hospitalization)
  Sender: FDA-Public Use
  Company Number: None

PATIENT
  Age: 83 Year
  Sex: Female

DRUGS (8)
  1. TOBI PODHALER [Suspect]
     Active Substance: TOBRAMYCIN
     Indication: CYSTIC FIBROSIS
     Dosage: OTHER DOSE:28 MGX4 BID  INHALATION?
     Route: 055
     Dates: start: 20210127
  2. GABAPENTIN. [Concomitant]
     Active Substance: GABAPENTIN
  3. LEVOTHYTOXIN [Concomitant]
  4. OXYCODONE [Concomitant]
     Active Substance: OXYCODONE
  5. FUROSEMIDE. [Concomitant]
     Active Substance: FUROSEMIDE
  6. FLUTICADSONE [Concomitant]
  7. PRAVASTATIN. [Concomitant]
     Active Substance: PRAVASTATIN
  8. PROZAC [Concomitant]
     Active Substance: FLUOXETINE HYDROCHLORIDE

REACTIONS (1)
  - Condition aggravated [None]
